FAERS Safety Report 13743563 (Version 1)
Quarter: 2017Q3

REPORT INFORMATION
  Report Type: Spontaneous
  Country: US (occurrence: US)
  Receive Date: 20170711
  Receipt Date: 20170711
  Transmission Date: 20171127
  Serious: No
  Sender: FDA-Public Use
  Company Number: US-ACTELION-A-US2016-138819

PATIENT
  Age: 66 Year
  Sex: Female
  Weight: 102.4 kg

DRUGS (3)
  1. AMLODIPINE [Concomitant]
     Active Substance: AMLODIPINE BESYLATE
  2. ADCIRCA [Concomitant]
     Active Substance: TADALAFIL
  3. VELETRI [Suspect]
     Active Substance: EPOPROSTENOL
     Indication: PULMONARY ARTERIAL HYPERTENSION
     Dosage: 20.5 NG/KG, PER MIN
     Route: 042
     Dates: start: 20140102

REACTIONS (5)
  - Nausea [Unknown]
  - Pain in jaw [Unknown]
  - Diarrhoea [Unknown]
  - Herpes zoster [Recovered/Resolved]
  - Dyspnoea exertional [Unknown]
